FAERS Safety Report 19457994 (Version 1)
Quarter: 2021Q2

REPORT INFORMATION
  Report Type: Report from Study
  Country: IE (occurrence: IE)
  Receive Date: 20210624
  Receipt Date: 20210624
  Transmission Date: 20210717
  Serious: Yes (Life-Threatening, Hospitalization, Other)
  Sender: FDA-Public Use
  Company Number: IE-MYLANLABS-2021M1037067

PATIENT
  Age: 35 Year
  Sex: Female
  Weight: 91 kg

DRUGS (14)
  1. INSULIN LISPRO [Suspect]
     Active Substance: INSULIN LISPRO
     Dosage: 86 INTERNATIONAL UNIT, QD (86 IU,QD)
     Route: 058
  2. ACTRAPID [Concomitant]
     Active Substance: INSULIN HUMAN
     Dosage: 1 INTERNATIONAL UNIT (1 IU,UNK)
     Route: 041
     Dates: start: 20170907
  3. LYRICA [Concomitant]
     Active Substance: PREGABALIN
     Dosage: UNK
     Route: 065
     Dates: start: 20120907
  4. LANTUS [Suspect]
     Active Substance: INSULIN GLARGINE
     Dosage: 40 INTERNATIONAL UNIT, QD (40 IU,QD)
     Route: 058
     Dates: start: 20021016
  5. L?THYROXINE                        /00068002/ [Concomitant]
     Active Substance: LEVOTHYROXINE SODIUM
     Dosage: UNK
     Route: 065
     Dates: start: 20170406
  6. METFORMIN [Suspect]
     Active Substance: METFORMIN HYDROCHLORIDE
     Indication: TYPE 1 DIABETES MELLITUS
     Dosage: 1000 MILLIGRAM, QD (1000 MG,QD)
     Route: 065
     Dates: start: 20150408
  7. INSULIN LISPRO [Suspect]
     Active Substance: INSULIN LISPRO
     Indication: TYPE 1 DIABETES MELLITUS
     Dosage: 90 INTERNATIONAL UNIT, QD (90 IU,QD)
     Route: 058
  8. AMITRIPTYLINE                      /00002202/ [Concomitant]
     Active Substance: AMITRIPTYLINE
     Dosage: UNK
     Route: 065
     Dates: start: 20120907
  9. SERTRALINE                         /01011402/ [Concomitant]
     Active Substance: SERTRALINE HYDROCHLORIDE
     Dosage: UNK
     Route: 065
     Dates: start: 2000
  10. FOLIC ACID. [Concomitant]
     Active Substance: FOLIC ACID
     Dosage: UNK
     Route: 065
     Dates: start: 20170323
  11. LANTUS [Suspect]
     Active Substance: INSULIN GLARGINE
     Dosage: 42 INTERNATIONAL UNIT, QD (42 UNK)
     Route: 058
     Dates: start: 20021016
  12. INSULIN LISPRO [Suspect]
     Active Substance: INSULIN LISPRO
     Dosage: 72 INTERNATIONAL UNIT, QD (72 IU,QD)
     Route: 058
     Dates: start: 20021016
  13. LANTUS [Suspect]
     Active Substance: INSULIN GLARGINE
     Indication: TYPE 1 DIABETES MELLITUS
     Dosage: 46 INTERNATIONAL UNIT, QD (46 IU,QD)
     Route: 058
  14. LANTUS [Suspect]
     Active Substance: INSULIN GLARGINE
     Dosage: 90 INTERNATIONAL UNIT, QD (90 IU,QD)
     Route: 058

REACTIONS (8)
  - Diabetes mellitus inadequate control [Recovered/Resolved]
  - Postpartum haemorrhage [Recovered/Resolved]
  - Product use issue [Unknown]
  - Exposure during pregnancy [Recovered/Resolved]
  - Infection [Unknown]
  - Intentional product misuse [Unknown]
  - Hypoglycaemia [Recovered/Resolved]
  - Medication error [Unknown]

NARRATIVE: CASE EVENT DATE: 20170420
